FAERS Safety Report 7394125-9 (Version None)
Quarter: 2011Q2

REPORT INFORMATION
  Report Type: 
  Country: None (occurrence: None)
  Receive Date: 20110405
  Receipt Date: 20110324
  Transmission Date: 20111010
  Serious: Yes (Hospitalization)
  Sender: FDA-Public Use
  Company Number: US-ELI_LILLY_AND_COMPANY-US201103007420

PATIENT
  Sex: Female

DRUGS (2)
  1. CYMBALTA [Suspect]
     Indication: DEPRESSION
     Dosage: 60 MG, QD
     Dates: end: 20110225
  2. CYMBALTA [Suspect]
     Dosage: 120 MG, QD
     Dates: start: 20110226

REACTIONS (4)
  - SELF-INJURIOUS IDEATION [None]
  - DEPRESSION [None]
  - FATIGUE [None]
  - SLUGGISHNESS [None]
